FAERS Safety Report 15729651 (Version 19)
Quarter: 2022Q2

REPORT INFORMATION
  Report Type: Spontaneous
  Country: GB (occurrence: GB)
  Receive Date: 20181217
  Receipt Date: 20220415
  Transmission Date: 20220721
  Serious: Yes (Death, Hospitalization, Other)
  Sender: FDA-Public Use
  Company Number: GB-EMA-DD20181127N9C8J7154750

PATIENT
  Age: 61 Year
  Sex: Female

DRUGS (271)
  1. DOCETAXEL [Suspect]
     Active Substance: DOCETAXEL
     Indication: HER2 positive breast cancer
     Dosage: 108 MG, Q3W DOSE MODIFIED
     Route: 042
     Dates: start: 20150602, end: 20150602
  2. DOCETAXEL [Suspect]
     Active Substance: DOCETAXEL
     Indication: Breast cancer metastatic
     Dosage: 80 MG, QOW (DOSE DISCONTINUED)
     Route: 042
     Dates: start: 20150629, end: 20150720
  3. DOCETAXEL [Suspect]
     Active Substance: DOCETAXEL
     Dosage: 108 MG, Q3W
     Route: 042
  4. DOCETAXEL [Suspect]
     Active Substance: DOCETAXEL
     Dosage: 108 MG
     Route: 042
  5. DOCETAXEL [Suspect]
     Active Substance: DOCETAXEL
     Dosage: 86 MG, QOW DOSE DISCONTINUED, THREE WEEK
     Route: 042
     Dates: start: 20150629, end: 20150720
  6. DOCETAXEL [Suspect]
     Active Substance: DOCETAXEL
     Dosage: 80 MG
     Route: 042
     Dates: start: 20150629
  7. DOCETAXEL [Suspect]
     Active Substance: DOCETAXEL
     Dosage: 80 MG, QOW (DOSE DISCONTINUED)
     Route: 042
     Dates: start: 20150629, end: 20150720
  8. DOCETAXEL [Suspect]
     Active Substance: DOCETAXEL
     Dosage: 80 MG, Q3W
     Route: 042
     Dates: start: 20150629, end: 20150720
  9. DOCETAXEL [Suspect]
     Active Substance: DOCETAXEL
     Dosage: 86 MG, Q3W
     Route: 042
     Dates: start: 20150629, end: 20150720
  10. DOCETAXEL [Suspect]
     Active Substance: DOCETAXEL
     Dosage: 108 MG, Q3W
     Route: 042
     Dates: start: 20150602, end: 20150602
  11. DOCETAXEL [Suspect]
     Active Substance: DOCETAXEL
     Dosage: 108 MG, Q3W
     Route: 042
  12. DOCETAXEL [Suspect]
     Active Substance: DOCETAXEL
     Dosage: 108 MG, Q3W
     Route: 042
     Dates: start: 20150602, end: 20150602
  13. DOCETAXEL [Suspect]
     Active Substance: DOCETAXEL
     Dosage: 108 MG, Q3W
     Route: 042
     Dates: start: 20150602, end: 20150602
  14. DOCETAXEL [Suspect]
     Active Substance: DOCETAXEL
     Dosage: 108 MG, Q3W
     Route: 042
     Dates: start: 20150602, end: 20150602
  15. DOCETAXEL [Suspect]
     Active Substance: DOCETAXEL
     Dosage: 108 MG, Q3W
     Route: 042
  16. DOCETAXEL [Suspect]
     Active Substance: DOCETAXEL
     Dosage: 108 MG, Q3W
     Route: 042
  17. DOCETAXEL [Suspect]
     Active Substance: DOCETAXEL
     Dosage: 86 MG, Q3W
     Route: 042
  18. DOCETAXEL [Suspect]
     Active Substance: DOCETAXEL
     Dosage: 86 MG, Q3W
     Route: 042
     Dates: start: 20150629, end: 20150720
  19. DOCETAXEL [Suspect]
     Active Substance: DOCETAXEL
     Dosage: 86 MG, Q3W
     Route: 042
     Dates: start: 20150629, end: 20150720
  20. DOCETAXEL [Suspect]
     Active Substance: DOCETAXEL
     Dosage: 108 MG, Q3W
     Route: 042
     Dates: start: 20150602, end: 20150602
  21. CAPECITABINE [Suspect]
     Active Substance: CAPECITABINE
     Indication: HER2 positive breast cancer
     Dosage: 3000 MG, QD
     Route: 048
     Dates: start: 20170210, end: 20170728
  22. CAPECITABINE [Suspect]
     Active Substance: CAPECITABINE
     Dosage: 3000 MG, QD
     Route: 048
     Dates: start: 20170210, end: 20170728
  23. CAPECITABINE [Suspect]
     Active Substance: CAPECITABINE
     Dosage: 1500 MG, BID
     Route: 048
     Dates: start: 20170210, end: 20170728
  24. CAPECITABINE [Suspect]
     Active Substance: CAPECITABINE
     Dosage: 3000 MG, QD
     Route: 048
     Dates: start: 20170210
  25. CAPECITABINE [Suspect]
     Active Substance: CAPECITABINE
     Dosage: 3000 MG, QD
     Route: 048
  26. CAPECITABINE [Suspect]
     Active Substance: CAPECITABINE
     Dosage: 1500 MG, BID
     Route: 048
  27. CAPECITABINE [Suspect]
     Active Substance: CAPECITABINE
     Dosage: 1500 MG, BID
     Route: 048
  28. CAPECITABINE [Suspect]
     Active Substance: CAPECITABINE
     Dosage: 1500 MG, BID
     Route: 048
     Dates: start: 20170210, end: 20170728
  29. CAPECITABINE [Suspect]
     Active Substance: CAPECITABINE
     Dosage: 1500 MG
     Route: 048
  30. CAPECITABINE [Suspect]
     Active Substance: CAPECITABINE
     Dosage: 1500 MILLIGRAM 0.5 DAY
     Route: 048
  31. CAPECITABINE [Suspect]
     Active Substance: CAPECITABINE
     Dosage: 3000 MG, QD
     Route: 048
     Dates: start: 20170210, end: 20170728
  32. CAPECITABINE [Suspect]
     Active Substance: CAPECITABINE
     Dosage: 1500 MG, BID
     Route: 048
     Dates: start: 20170210, end: 20170728
  33. CAPECITABINE [Suspect]
     Active Substance: CAPECITABINE
     Dosage: 3000 MG, QD
     Route: 048
     Dates: start: 20170210, end: 20170728
  34. CAPECITABINE [Suspect]
     Active Substance: CAPECITABINE
     Dosage: 3000 MG, QD
     Route: 048
     Dates: start: 20170210, end: 20170728
  35. CAPECITABINE [Suspect]
     Active Substance: CAPECITABINE
     Dosage: 3000 MG, QD
     Route: 048
     Dates: start: 20170210, end: 20170728
  36. CAPECITABINE [Suspect]
     Active Substance: CAPECITABINE
     Dosage: 3000 MG, QD
     Route: 048
     Dates: start: 20170210, end: 20170728
  37. CAPECITABINE [Suspect]
     Active Substance: CAPECITABINE
     Dosage: 3000 MG, QD
     Route: 048
     Dates: start: 20170210, end: 20170728
  38. CAPECITABINE [Suspect]
     Active Substance: CAPECITABINE
     Dosage: 3000 MG, QD
     Route: 048
     Dates: start: 20170210, end: 20170728
  39. CAPECITABINE [Suspect]
     Active Substance: CAPECITABINE
     Dosage: 6000 MILLIGRAM DAILY; 3000 MILLIGRAM, BID   UNK
     Route: 048
     Dates: start: 20170210, end: 20170728
  40. CAPECITABINE [Suspect]
     Active Substance: CAPECITABINE
     Dosage: 3000 MG, BID
     Route: 048
     Dates: start: 20170210, end: 20170728
  41. CAPECITABINE [Suspect]
     Active Substance: CAPECITABINE
     Dosage: 3000MG ONCE DAILY (EVERY 0.5 DAY)
     Route: 048
     Dates: start: 20170210, end: 20170728
  42. CAPECITABINE [Suspect]
     Active Substance: CAPECITABINE
     Dosage: 1500 MILLIGRAM, 0.5 DAY (3000MG ONCE DAILY)
     Route: 048
     Dates: start: 20170210, end: 20170728
  43. CAPECITABINE [Suspect]
     Active Substance: CAPECITABINE
     Dosage: UNK
  44. TRASTUZUMAB [Suspect]
     Active Substance: TRASTUZUMAB
     Indication: HER2 positive breast cancer
     Dosage: 350 MG LOADING DOSE
     Route: 042
     Dates: start: 20150601, end: 20150601
  45. TRASTUZUMAB [Suspect]
     Active Substance: TRASTUZUMAB
     Indication: Breast cancer metastatic
     Dosage: 350 MG LOADING DOSE FORM: INFUSION, SOLUTION
     Route: 042
     Dates: start: 20150601, end: 20150601
  46. TRASTUZUMAB [Suspect]
     Active Substance: TRASTUZUMAB
     Dosage: 300 MG, Q3W
     Route: 042
     Dates: start: 20150629, end: 20151102
  47. TRASTUZUMAB [Suspect]
     Active Substance: TRASTUZUMAB
     Dosage: 172 MG, Q3W
     Route: 042
     Dates: start: 20151201, end: 20151221
  48. TRASTUZUMAB [Suspect]
     Active Substance: TRASTUZUMAB
     Dosage: 1 DF, Q3W DOSE REDUCED
     Route: 042
  49. TRASTUZUMAB [Suspect]
     Active Substance: TRASTUZUMAB
     Dosage: 140 MG, Q3W
     Route: 042
     Dates: start: 20160215, end: 20160215
  50. TRASTUZUMAB [Suspect]
     Active Substance: TRASTUZUMAB
     Dosage: 300 MG, Q3W
     Route: 042
     Dates: start: 20151102, end: 20151102
  51. TRASTUZUMAB [Suspect]
     Active Substance: TRASTUZUMAB
     Dosage: UNK, Q3W
     Route: 042
  52. TRASTUZUMAB [Suspect]
     Active Substance: TRASTUZUMAB
     Dosage: 300 MG, Q3W  (DOSE MODIFIED)
     Route: 042
  53. TRASTUZUMAB [Suspect]
     Active Substance: TRASTUZUMAB
     Dosage: UNK, Q3W
     Route: 042
  54. TRASTUZUMAB [Suspect]
     Active Substance: TRASTUZUMAB
     Dosage: 350 MG, QD LOADING DOSE
     Route: 042
     Dates: start: 20150601, end: 20150601
  55. TRASTUZUMAB [Suspect]
     Active Substance: TRASTUZUMAB
     Dosage: 140 MG, Q3W
     Route: 042
     Dates: start: 20151201, end: 20160215
  56. TRASTUZUMAB [Suspect]
     Active Substance: TRASTUZUMAB
     Dosage: UNK UNK, DOSE REDUCED
     Route: 042
  57. TRASTUZUMAB [Suspect]
     Active Substance: TRASTUZUMAB
     Dosage: 140 MG, Q3W
     Route: 042
  58. TRASTUZUMAB [Suspect]
     Active Substance: TRASTUZUMAB
     Dosage: 300 MG DOSE MODIFIED
     Route: 042
     Dates: start: 20150629, end: 20151102
  59. TRASTUZUMAB [Suspect]
     Active Substance: TRASTUZUMAB
     Dosage: 300 MG
     Route: 042
  60. TRASTUZUMAB [Suspect]
     Active Substance: TRASTUZUMAB
     Dosage: 1 DF DOSE REDUCED
     Route: 042
  61. TRASTUZUMAB [Suspect]
     Active Substance: TRASTUZUMAB
     Dosage: 350 MG, Q3W
     Route: 042
     Dates: start: 20150601, end: 20151101
  62. TRASTUZUMAB [Suspect]
     Active Substance: TRASTUZUMAB
     Dosage: 300 MG, Q3W
     Route: 042
     Dates: start: 20150629, end: 20151102
  63. TRASTUZUMAB [Suspect]
     Active Substance: TRASTUZUMAB
     Dosage: 1 DF DOSE REDUCED
     Route: 042
  64. TRASTUZUMAB [Suspect]
     Active Substance: TRASTUZUMAB
     Dosage: 350 MG , LOADING DOSE
     Route: 042
     Dates: start: 20150601
  65. TRASTUZUMAB [Suspect]
     Active Substance: TRASTUZUMAB
     Dosage: 300 MG, Q3W
     Route: 042
     Dates: start: 20150601, end: 20151101
  66. TRASTUZUMAB [Suspect]
     Active Substance: TRASTUZUMAB
     Dosage: 1 MG, EVERY 3 WEEKS, DOSE REDUCED (PHARMACEUTICAL DOSE FORM: 230)
     Route: 042
  67. VINORELBINE TARTRATE [Suspect]
     Active Substance: VINORELBINE TARTRATE
     Indication: Breast cancer metastatic
     Dosage: 60 MG
     Route: 048
     Dates: start: 20180503, end: 20180608
  68. VINORELBINE TARTRATE [Suspect]
     Active Substance: VINORELBINE TARTRATE
     Indication: HER2 positive breast cancer
     Dosage: 60 MG
     Route: 048
     Dates: start: 20180608, end: 20180810
  69. VINORELBINE TARTRATE [Suspect]
     Active Substance: VINORELBINE TARTRATE
     Dosage: 60 MG
     Route: 048
     Dates: start: 20180503, end: 20180508
  70. VINORELBINE TARTRATE [Suspect]
     Active Substance: VINORELBINE TARTRATE
     Dosage: 60 MG
     Route: 048
     Dates: start: 20180530, end: 20180608
  71. VINORELBINE TARTRATE [Suspect]
     Active Substance: VINORELBINE TARTRATE
     Dosage: 60 MG
     Route: 048
  72. VINORELBINE TARTRATE [Suspect]
     Active Substance: VINORELBINE TARTRATE
     Dosage: 60 MG
     Route: 048
     Dates: start: 20180503, end: 20180608
  73. VINORELBINE TARTRATE [Suspect]
     Active Substance: VINORELBINE TARTRATE
     Dosage: 60 MG
     Route: 048
     Dates: start: 20180530, end: 20180608
  74. VINORELBINE TARTRATE [Suspect]
     Active Substance: VINORELBINE TARTRATE
     Dosage: 60 MG
     Route: 048
     Dates: start: 20180608, end: 20180810
  75. ADO-TRASTUZUMAB EMTANSINE [Suspect]
     Active Substance: ADO-TRASTUZUMAB EMTANSINE
     Indication: HER2 positive breast cancer
     Dosage: 172 MG, Q3W
     Route: 042
     Dates: start: 20151201, end: 20151221
  76. ADO-TRASTUZUMAB EMTANSINE [Suspect]
     Active Substance: ADO-TRASTUZUMAB EMTANSINE
     Indication: Breast cancer metastatic
     Dosage: 140 MG, Q3W
     Route: 042
     Dates: start: 20151201, end: 20160215
  77. ADO-TRASTUZUMAB EMTANSINE [Suspect]
     Active Substance: ADO-TRASTUZUMAB EMTANSINE
     Dosage: 140 MG, Q3W
     Route: 042
     Dates: start: 20160215, end: 20160215
  78. ADO-TRASTUZUMAB EMTANSINE [Suspect]
     Active Substance: ADO-TRASTUZUMAB EMTANSINE
     Dosage: 140 MG, Q3W
     Route: 042
  79. ADO-TRASTUZUMAB EMTANSINE [Suspect]
     Active Substance: ADO-TRASTUZUMAB EMTANSINE
     Dosage: 172 MG, Q3W
     Route: 042
     Dates: start: 20151201
  80. ADO-TRASTUZUMAB EMTANSINE [Suspect]
     Active Substance: ADO-TRASTUZUMAB EMTANSINE
     Dosage: 172 MG, Q3W
     Route: 042
     Dates: start: 20151201, end: 20151221
  81. ADO-TRASTUZUMAB EMTANSINE [Suspect]
     Active Substance: ADO-TRASTUZUMAB EMTANSINE
     Dosage: 140 MG, Q3W
     Route: 042
     Dates: start: 20160215, end: 20160215
  82. ADO-TRASTUZUMAB EMTANSINE [Suspect]
     Active Substance: ADO-TRASTUZUMAB EMTANSINE
     Dosage: 140 MG, Q3W
     Route: 042
     Dates: start: 20160215, end: 20160215
  83. ADO-TRASTUZUMAB EMTANSINE [Suspect]
     Active Substance: ADO-TRASTUZUMAB EMTANSINE
     Dosage: 140 MG, QOW
     Route: 042
     Dates: start: 20160215, end: 20160215
  84. ADO-TRASTUZUMAB EMTANSINE [Suspect]
     Active Substance: ADO-TRASTUZUMAB EMTANSINE
     Dosage: 140 MG, Q3W
     Route: 042
     Dates: start: 20151201, end: 20160215
  85. ADO-TRASTUZUMAB EMTANSINE [Suspect]
     Active Substance: ADO-TRASTUZUMAB EMTANSINE
     Dosage: 140 MG, Q3W
     Route: 042
     Dates: start: 20160215, end: 20160215
  86. ADO-TRASTUZUMAB EMTANSINE [Suspect]
     Active Substance: ADO-TRASTUZUMAB EMTANSINE
     Dosage: 172 MG, Q3W
     Route: 042
     Dates: start: 20151201, end: 20151221
  87. ADO-TRASTUZUMAB EMTANSINE [Suspect]
     Active Substance: ADO-TRASTUZUMAB EMTANSINE
     Dosage: 140 MG, Q3W
     Route: 042
     Dates: start: 20160215, end: 20160215
  88. ADO-TRASTUZUMAB EMTANSINE [Suspect]
     Active Substance: ADO-TRASTUZUMAB EMTANSINE
     Dosage: 172 MG, Q3W
     Route: 041
     Dates: start: 20151201, end: 20151221
  89. ADO-TRASTUZUMAB EMTANSINE [Suspect]
     Active Substance: ADO-TRASTUZUMAB EMTANSINE
     Dosage: 172 MG, Q3W
     Route: 042
     Dates: start: 20151201
  90. ADO-TRASTUZUMAB EMTANSINE [Suspect]
     Active Substance: ADO-TRASTUZUMAB EMTANSINE
     Dosage: 172 MG, Q3W
     Route: 041
     Dates: start: 20151201, end: 20151221
  91. ADO-TRASTUZUMAB EMTANSINE [Suspect]
     Active Substance: ADO-TRASTUZUMAB EMTANSINE
     Dosage: 140 MG, Q3W
     Route: 042
     Dates: start: 20160215, end: 20160215
  92. ADO-TRASTUZUMAB EMTANSINE [Suspect]
     Active Substance: ADO-TRASTUZUMAB EMTANSINE
     Dosage: 140 MG, Q3W
     Route: 042
     Dates: start: 20160215, end: 20160215
  93. ADO-TRASTUZUMAB EMTANSINE [Suspect]
     Active Substance: ADO-TRASTUZUMAB EMTANSINE
     Dosage: 140 MG, Q3W
     Route: 042
     Dates: start: 20151201, end: 20160215
  94. ADO-TRASTUZUMAB EMTANSINE [Suspect]
     Active Substance: ADO-TRASTUZUMAB EMTANSINE
     Dosage: 140 MG, Q3W
     Route: 042
     Dates: start: 20160215, end: 20160215
  95. ADO-TRASTUZUMAB EMTANSINE [Suspect]
     Active Substance: ADO-TRASTUZUMAB EMTANSINE
     Dosage: 172 MG, Q3W
     Route: 041
     Dates: start: 20151201, end: 20151221
  96. ADO-TRASTUZUMAB EMTANSINE [Suspect]
     Active Substance: ADO-TRASTUZUMAB EMTANSINE
     Dosage: 140 MG, Q3W
     Route: 042
     Dates: start: 20160215, end: 20160215
  97. ADO-TRASTUZUMAB EMTANSINE [Suspect]
     Active Substance: ADO-TRASTUZUMAB EMTANSINE
     Dosage: 140 MG, Q3W
     Route: 042
     Dates: start: 20160215, end: 20160215
  98. ADO-TRASTUZUMAB EMTANSINE [Suspect]
     Active Substance: ADO-TRASTUZUMAB EMTANSINE
     Dosage: 140 MG, Q3W
     Route: 042
     Dates: start: 20151201, end: 20160215
  99. ADO-TRASTUZUMAB EMTANSINE [Suspect]
     Active Substance: ADO-TRASTUZUMAB EMTANSINE
     Dosage: 140 MG, Q3W
     Route: 042
     Dates: start: 20151201, end: 20160215
  100. ADO-TRASTUZUMAB EMTANSINE [Suspect]
     Active Substance: ADO-TRASTUZUMAB EMTANSINE
     Dosage: 172 MG, Q3W
     Route: 041
     Dates: start: 20151201, end: 20151201
  101. ADO-TRASTUZUMAB EMTANSINE [Suspect]
     Active Substance: ADO-TRASTUZUMAB EMTANSINE
     Dosage: 172 MG, Q3W
     Route: 041
     Dates: start: 20151201, end: 20151221
  102. ADO-TRASTUZUMAB EMTANSINE [Suspect]
     Active Substance: ADO-TRASTUZUMAB EMTANSINE
     Dosage: 172 MG, Q3W
     Route: 042
  103. ADO-TRASTUZUMAB EMTANSINE [Suspect]
     Active Substance: ADO-TRASTUZUMAB EMTANSINE
     Dosage: 140 MG, Q3W
     Route: 042
  104. ADO-TRASTUZUMAB EMTANSINE [Suspect]
     Active Substance: ADO-TRASTUZUMAB EMTANSINE
     Dosage: 172 MG, Q3W
     Route: 041
     Dates: start: 20151201, end: 20151221
  105. ADO-TRASTUZUMAB EMTANSINE [Suspect]
     Active Substance: ADO-TRASTUZUMAB EMTANSINE
     Dosage: 172 MG, Q3W
     Route: 041
     Dates: start: 20151201
  106. NERATINIB [Suspect]
     Active Substance: NERATINIB
     Indication: HER2 positive breast cancer
     Dosage: 40 MG, QD
     Route: 048
     Dates: start: 20170901, end: 20180314
  107. NERATINIB [Suspect]
     Active Substance: NERATINIB
     Indication: Breast cancer metastatic
     Dosage: 240 MILLIGRAM, QD
     Route: 048
     Dates: start: 20170901, end: 20180216
  108. NERATINIB [Suspect]
     Active Substance: NERATINIB
     Dosage: 240 MG, QD
     Route: 048
     Dates: start: 20180223, end: 20180420
  109. NERATINIB [Suspect]
     Active Substance: NERATINIB
     Dosage: 40 MG, QD
     Route: 048
  110. NERATINIB [Suspect]
     Active Substance: NERATINIB
     Dosage: UNK
  111. NERATINIB [Suspect]
     Active Substance: NERATINIB
     Dosage: 240 MG, QD
     Route: 048
  112. NERATINIB [Suspect]
     Active Substance: NERATINIB
     Dosage: 240 MG, QD
     Route: 048
     Dates: start: 20170901, end: 20180216
  113. NERATINIB [Suspect]
     Active Substance: NERATINIB
     Dosage: 40 MG, QD
     Route: 048
     Dates: start: 20170901
  114. NERATINIB [Suspect]
     Active Substance: NERATINIB
     Dosage: 40 MG, QD
     Route: 048
     Dates: start: 20170901, end: 20180314
  115. NERATINIB [Suspect]
     Active Substance: NERATINIB
     Dosage: 240 MG, QD
     Route: 065
     Dates: start: 20180420
  116. NERATINIB [Suspect]
     Active Substance: NERATINIB
     Dosage: 240 MG, QD
     Route: 048
  117. NERATINIB [Suspect]
     Active Substance: NERATINIB
     Dosage: 40 MG
     Route: 048
  118. NERATINIB [Suspect]
     Active Substance: NERATINIB
     Dosage: 40 MG, QD
     Route: 048
  119. NERATINIB [Suspect]
     Active Substance: NERATINIB
     Dosage: 40 MG
     Route: 048
     Dates: start: 20170901
  120. NERATINIB [Suspect]
     Active Substance: NERATINIB
     Dosage: 240 MG
     Route: 048
  121. NERATINIB [Suspect]
     Active Substance: NERATINIB
     Dosage: 40 MG, QD
     Route: 048
     Dates: start: 20170901, end: 20180314
  122. NERATINIB [Suspect]
     Active Substance: NERATINIB
     Dosage: 240 MG, QD
     Route: 048
     Dates: start: 20170901, end: 20180314
  123. NERATINIB [Suspect]
     Active Substance: NERATINIB
     Dosage: 40 MG, QD
     Route: 048
     Dates: start: 20170901, end: 20180314
  124. NERATINIB [Suspect]
     Active Substance: NERATINIB
     Dosage: 240 MG
     Route: 048
  125. NERATINIB [Suspect]
     Active Substance: NERATINIB
     Dosage: 240 MG, QD
     Route: 048
     Dates: start: 20180223, end: 20180420
  126. NERATINIB [Suspect]
     Active Substance: NERATINIB
     Dosage: UNK
     Route: 065
  127. ERIBULIN [Suspect]
     Active Substance: ERIBULIN
     Indication: HER2 positive breast cancer
     Dosage: 1.5 MG, Q3W
     Route: 042
     Dates: start: 20160411, end: 20160624
  128. ERIBULIN [Suspect]
     Active Substance: ERIBULIN
     Indication: Breast cancer metastatic
     Dosage: 1.5 MG, Q3W
     Route: 042
  129. ERIBULIN [Suspect]
     Active Substance: ERIBULIN
     Dosage: UNK
  130. ERIBULIN [Suspect]
     Active Substance: ERIBULIN
     Dosage: 1.5 MG, Q3W
     Route: 042
     Dates: start: 20160411, end: 20160624
  131. ERIBULIN [Suspect]
     Active Substance: ERIBULIN
     Dosage: 1.5 MG, Q3W
     Route: 042
  132. ERIBULIN [Suspect]
     Active Substance: ERIBULIN
     Dosage: 1.5 MG, Q3W
     Route: 042
     Dates: start: 20160411, end: 20160411
  133. ERIBULIN [Suspect]
     Active Substance: ERIBULIN
     Dosage: 1.5 MG, Q3W
     Route: 042
     Dates: start: 20160411
  134. ERIBULIN [Suspect]
     Active Substance: ERIBULIN
     Dosage: 1.5 MG, Q3W
     Route: 042
  135. ERIBULIN [Suspect]
     Active Substance: ERIBULIN
     Dosage: 1.5 MG, Q3W
     Route: 042
     Dates: start: 20160411
  136. ERIBULIN [Suspect]
     Active Substance: ERIBULIN
     Dosage: 1.5 MG, QOW
     Route: 042
  137. ERIBULIN [Suspect]
     Active Substance: ERIBULIN
     Dosage: 1.5 MG, Q3W
     Route: 042
     Dates: start: 20160411
  138. ERIBULIN [Suspect]
     Active Substance: ERIBULIN
     Dosage: 1.5 MG, Q3W
     Route: 042
     Dates: start: 20160411
  139. ERIBULIN [Suspect]
     Active Substance: ERIBULIN
     Dosage: 1.5 MG, Q3W
     Route: 042
  140. ERIBULIN [Suspect]
     Active Substance: ERIBULIN
     Dosage: UNK
  141. ERIBULIN [Suspect]
     Active Substance: ERIBULIN
     Dosage: 1.5 MG, Q3W
     Route: 042
     Dates: start: 20160411
  142. ERIBULIN [Suspect]
     Active Substance: ERIBULIN
     Dosage: 1.5 MG
     Route: 042
  143. ERIBULIN [Suspect]
     Active Substance: ERIBULIN
     Dosage: 1.5 MG, Q3W
     Route: 042
     Dates: start: 20160624, end: 20160624
  144. ERIBULIN [Suspect]
     Active Substance: ERIBULIN
     Dosage: 1.5 MG, Q3W
     Route: 042
  145. ERIBULIN [Suspect]
     Active Substance: ERIBULIN
     Dosage: 1.5 MG, QOW
     Route: 042
  146. ERIBULIN [Suspect]
     Active Substance: ERIBULIN
     Route: 042
  147. ERIBULIN [Suspect]
     Active Substance: ERIBULIN
     Route: 042
  148. ERIBULIN [Suspect]
     Active Substance: ERIBULIN
     Dosage: UNK
  149. ERIBULIN [Suspect]
     Active Substance: ERIBULIN
     Indication: HER2 positive breast cancer
     Dosage: 1.5 MG, Q3W
     Route: 042
     Dates: start: 20160411
  150. ERIBULIN [Suspect]
     Active Substance: ERIBULIN
     Dosage: 1.5 MG, Q3W
     Route: 042
     Dates: start: 20160411, end: 20160624
  151. ERIBULIN [Suspect]
     Active Substance: ERIBULIN
     Dosage: 1.5 MG, Q3W
     Route: 042
     Dates: start: 20160624, end: 20160624
  152. ERIBULIN [Suspect]
     Active Substance: ERIBULIN
     Dosage: 1.5 MG
     Route: 042
     Dates: start: 20160411, end: 20160411
  153. PERTUZUMAB [Suspect]
     Active Substance: PERTUZUMAB
     Indication: HER2 positive breast cancer
     Dosage: 420 MILLIGRAM, Q3W,TARGETED THERAPY
     Route: 042
     Dates: start: 20150622, end: 20151102
  154. PERTUZUMAB [Suspect]
     Active Substance: PERTUZUMAB
     Indication: Breast cancer metastatic
     Dosage: 840 MG LOADING DOSE
     Route: 042
  155. PERTUZUMAB [Suspect]
     Active Substance: PERTUZUMAB
     Dosage: 1 DF, Q3W DOSE REDUCED
     Route: 042
  156. PERTUZUMAB [Suspect]
     Active Substance: PERTUZUMAB
     Dosage: 420 MG, Q3W
     Route: 042
     Dates: start: 20151102
  157. PERTUZUMAB [Suspect]
     Active Substance: PERTUZUMAB
     Dosage: 1 DF
     Route: 042
  158. PERTUZUMAB [Suspect]
     Active Substance: PERTUZUMAB
     Dosage: 840 MG, Q3W
     Route: 042
  159. PERTUZUMAB [Suspect]
     Active Substance: PERTUZUMAB
     Dosage: 420 MG TARGETED THERAPY
     Route: 042
     Dates: start: 20151102
  160. PERTUZUMAB [Suspect]
     Active Substance: PERTUZUMAB
     Dosage: 1 DF, Q3W DOSE REDUCED
     Route: 042
  161. PERTUZUMAB [Suspect]
     Active Substance: PERTUZUMAB
     Dosage: 420 MG, Q3W
     Route: 042
  162. PERTUZUMAB [Suspect]
     Active Substance: PERTUZUMAB
     Dosage: 840 MG
     Route: 042
  163. PERTUZUMAB [Suspect]
     Active Substance: PERTUZUMAB
     Dosage: 840 MG
     Route: 042
  164. PERTUZUMAB [Suspect]
     Active Substance: PERTUZUMAB
     Dosage: 420 MG, Q3W
     Route: 042
     Dates: start: 20150622, end: 20150622
  165. PERTUZUMAB [Suspect]
     Active Substance: PERTUZUMAB
     Dosage: 420 MG, Q3W
     Route: 041
     Dates: start: 20150622, end: 20151102
  166. PERTUZUMAB [Suspect]
     Active Substance: PERTUZUMAB
     Dosage: 840 MG
     Route: 042
  167. PERTUZUMAB [Suspect]
     Active Substance: PERTUZUMAB
     Dosage: 420 MG, Q3W
     Route: 042
     Dates: start: 20150622, end: 20151102
  168. PERTUZUMAB [Suspect]
     Active Substance: PERTUZUMAB
     Dosage: 420 MG, Q3W
     Route: 041
     Dates: start: 20150622, end: 20151102
  169. PERTUZUMAB [Suspect]
     Active Substance: PERTUZUMAB
     Dosage: 1 DF, Q3W DOSE REDUCED
     Route: 042
  170. PERTUZUMAB [Suspect]
     Active Substance: PERTUZUMAB
     Dosage: 1 DF
     Route: 042
  171. PERTUZUMAB [Suspect]
     Active Substance: PERTUZUMAB
     Dosage: 420 MG, Q3W
     Route: 041
     Dates: start: 20150622, end: 20151102
  172. PERTUZUMAB [Suspect]
     Active Substance: PERTUZUMAB
     Dosage: 420 MG, Q3W
     Route: 042
     Dates: start: 20151102, end: 20151102
  173. PERTUZUMAB [Suspect]
     Active Substance: PERTUZUMAB
     Dosage: 420 MG, Q3W
     Route: 041
     Dates: start: 20150622, end: 20151102
  174. PERTUZUMAB [Suspect]
     Active Substance: PERTUZUMAB
     Dosage: 420 MG, Q3W
     Route: 041
     Dates: start: 20150622, end: 20151102
  175. PERTUZUMAB [Suspect]
     Active Substance: PERTUZUMAB
     Dosage: 840 MG
     Route: 042
  176. PERTUZUMAB [Suspect]
     Active Substance: PERTUZUMAB
     Dosage: 420 MG, Q3W
     Route: 042
  177. PERTUZUMAB [Suspect]
     Active Substance: PERTUZUMAB
     Dosage: 1 DF, Q3W
     Route: 042
  178. PERTUZUMAB [Suspect]
     Active Substance: PERTUZUMAB
     Dosage: 420 MILLIGRAM, Q3W
     Route: 042
  179. PERTUZUMAB [Suspect]
     Active Substance: PERTUZUMAB
     Dosage: 840 MILLIGRAM, Q3W (1 DF)
     Route: 042
  180. PERTUZUMAB [Suspect]
     Active Substance: PERTUZUMAB
     Dosage: 420 MILLIGRAM, Q3W,TARGETED THERAPY
     Route: 042
  181. PERTUZUMAB [Suspect]
     Active Substance: PERTUZUMAB
     Dosage: 1 DOSAGE FORM
     Route: 042
  182. PERTUZUMAB [Suspect]
     Active Substance: PERTUZUMAB
     Dosage: 1 DOSAGE FORM, Q3W, UNK, Q3WK, DOSE REDUCED
     Route: 042
  183. PERTUZUMAB [Suspect]
     Active Substance: PERTUZUMAB
     Dosage: 840 MILLIGRAM,LOADING CASE
     Route: 042
  184. PERTUZUMAB [Suspect]
     Active Substance: PERTUZUMAB
     Dosage: 840 MILLIGRAM,LOADING CASE
     Route: 042
  185. PERTUZUMAB [Suspect]
     Active Substance: PERTUZUMAB
     Dosage: 420 MILLIGRAM, Q3W
     Route: 042
  186. PERTUZUMAB [Suspect]
     Active Substance: PERTUZUMAB
     Dosage: 420 MILLIGRAM, Q3W,TARGETED THERAPY
     Route: 042
  187. PERTUZUMAB [Suspect]
     Active Substance: PERTUZUMAB
     Dosage: 1 DOSAGE FORM
     Route: 042
  188. PERTUZUMAB [Suspect]
     Active Substance: PERTUZUMAB
     Dosage: 1 DOSAGE FORM, Q3W, UNK, Q3WK, DOSE REDUCED
     Route: 042
  189. PERTUZUMAB [Suspect]
     Active Substance: PERTUZUMAB
     Dosage: 840 MILLIGRAM, Q3W (1 DF)
     Route: 042
  190. PIPERACILLIN SODIUM\TAZOBACTAM SODIUM [Concomitant]
     Active Substance: PIPERACILLIN SODIUM\TAZOBACTAM SODIUM
     Indication: Lower respiratory tract infection
     Dosage: UNK
     Route: 042
     Dates: start: 20170213, end: 20170215
  191. LOPERAMIDE [Concomitant]
     Active Substance: LOPERAMIDE
     Indication: Diarrhoea
     Dosage: 2 MILLIGRAM, PRN
     Route: 048
     Dates: start: 20170901, end: 20171124
  192. LOPERAMIDE [Concomitant]
     Active Substance: LOPERAMIDE
     Dosage: 2 MG, PRN, INTRAVENTRICULAR
     Route: 048
     Dates: start: 20170901, end: 20171124
  193. LOPERAMIDE [Concomitant]
     Active Substance: LOPERAMIDE
     Dosage: 245 UNK
     Route: 048
     Dates: start: 20170901, end: 20171124
  194. LOPERAMIDE [Concomitant]
     Active Substance: LOPERAMIDE
     Dosage: 2 MG, QD
     Route: 048
     Dates: start: 20170901, end: 20171124
  195. LOPERAMIDE [Concomitant]
     Active Substance: LOPERAMIDE
     Dosage: 245 UNK
     Route: 048
     Dates: start: 20170901, end: 20171124
  196. GENTAMICIN [Concomitant]
     Active Substance: GENTAMICIN
     Indication: Lower respiratory tract infection
     Dosage: UNK
     Route: 042
     Dates: start: 20170213, end: 201702
  197. GENTAMICIN [Concomitant]
     Active Substance: GENTAMICIN
     Dosage: UNK
     Route: 042
     Dates: start: 20170213, end: 201702
  198. GENTAMICIN [Concomitant]
     Active Substance: GENTAMICIN
     Dosage: UNK
     Route: 042
     Dates: start: 20170213, end: 201702
  199. DOMPERIDONE [Concomitant]
     Active Substance: DOMPERIDONE
     Dosage: 10 MG, QD
     Route: 048
     Dates: start: 20160406, end: 20160421
  200. DOMPERIDONE [Concomitant]
     Active Substance: DOMPERIDONE
     Dosage: 30 MG, QD
     Route: 048
     Dates: start: 20160406, end: 20160421
  201. DOMPERIDONE [Concomitant]
     Active Substance: DOMPERIDONE
     Dosage: 10 MG, QD
     Route: 048
     Dates: start: 20160406, end: 20160421
  202. DOMPERIDONE [Concomitant]
     Active Substance: DOMPERIDONE
     Dosage: 10 MG, EVERY 0.33 DAY
     Route: 048
     Dates: start: 20160406, end: 20160421
  203. DOMPERIDONE [Concomitant]
     Active Substance: DOMPERIDONE
     Dosage: 10 MG, QD
     Route: 048
     Dates: start: 20160406, end: 20160421
  204. AMLODIPINE [Concomitant]
     Active Substance: AMLODIPINE BESYLATE
     Indication: Product used for unknown indication
     Dosage: 10 MG
     Route: 048
  205. AMLODIPINE [Concomitant]
     Active Substance: AMLODIPINE BESYLATE
     Dosage: 10 MG
     Route: 048
  206. AMLODIPINE [Concomitant]
     Active Substance: AMLODIPINE BESYLATE
     Dosage: 10 MG
     Route: 048
  207. AMLODIPINE [Concomitant]
     Active Substance: AMLODIPINE BESYLATE
     Dosage: 10 MG
     Route: 048
  208. AMLODIPINE [Concomitant]
     Active Substance: AMLODIPINE BESYLATE
     Dosage: 10 MILLIGRAM
     Route: 048
  209. AMLODIPINE [Concomitant]
     Active Substance: AMLODIPINE BESYLATE
     Dosage: 10 MILLIGRAM
     Route: 048
  210. MUPIROCIN [Concomitant]
     Active Substance: MUPIROCIN
     Indication: Prophylaxis
     Dosage: 2 %, QD
     Route: 061
     Dates: start: 20160620, end: 20160624
  211. MUPIROCIN [Concomitant]
     Active Substance: MUPIROCIN
     Dosage: 6 %, QD
     Route: 061
     Dates: start: 20160620, end: 20160624
  212. MUPIROCIN [Concomitant]
     Active Substance: MUPIROCIN
     Dosage: 2 %, QD
     Route: 061
     Dates: start: 20160620, end: 20160624
  213. MUPIROCIN [Concomitant]
     Active Substance: MUPIROCIN
     Dosage: 6 %, QD
     Route: 061
     Dates: start: 20160620, end: 20160624
  214. MUPIROCIN [Concomitant]
     Active Substance: MUPIROCIN
     Dosage: 2 %, QD
     Route: 061
     Dates: start: 20160620, end: 20160624
  215. MUPIROCIN [Concomitant]
     Active Substance: MUPIROCIN
     Dosage: UNK, EVERY 0.33 DAY
     Route: 061
     Dates: start: 20160620, end: 20160624
  216. POTASSIUM [Concomitant]
     Active Substance: POTASSIUM
     Indication: Nutritional supplementation
     Dosage: 2 DOSAGE FORM, QD,2 TABLETS EVERY DAY
     Route: 048
     Dates: start: 20150828, end: 20150830
  217. MEROPENEM [Concomitant]
     Active Substance: MEROPENEM
     Indication: Lower respiratory tract infection
     Dosage: UNK
     Route: 042
     Dates: start: 20170215, end: 20170221
  218. MEROPENEM [Concomitant]
     Active Substance: MEROPENEM
     Dosage: UNK
     Route: 042
     Dates: start: 20170215, end: 20170221
  219. MEROPENEM [Concomitant]
     Active Substance: MEROPENEM
     Dosage: UNK
     Route: 042
     Dates: start: 20170215, end: 20170221
  220. CIPROFLOXACIN [Concomitant]
     Active Substance: CIPROFLOXACIN
     Dosage: 500 MG, QD
     Route: 048
     Dates: start: 20151218, end: 20151225
  221. CIPROFLOXACIN [Concomitant]
     Active Substance: CIPROFLOXACIN
     Dosage: 1000 MG, QD
     Route: 048
     Dates: start: 20151218, end: 20151225
  222. CIPROFLOXACIN [Concomitant]
     Active Substance: CIPROFLOXACIN
     Dosage: 500 MG, QD
     Route: 048
     Dates: start: 20151218, end: 20151225
  223. CIPROFLOXACIN [Concomitant]
     Active Substance: CIPROFLOXACIN
     Dosage: 500 MG, QD
     Route: 048
     Dates: start: 20151218, end: 20151225
  224. CIPROFLOXACIN [Concomitant]
     Active Substance: CIPROFLOXACIN
     Dosage: 500 MG, QD
     Route: 048
     Dates: start: 20151218, end: 20151225
  225. CIPROFLOXACIN [Concomitant]
     Active Substance: CIPROFLOXACIN
     Dosage: 500 MG, QD
     Route: 048
     Dates: start: 20151218, end: 20151225
  226. CIPROFLOXACIN [Concomitant]
     Active Substance: CIPROFLOXACIN
     Dosage: 1000 MG, QD
     Route: 048
     Dates: start: 20151218, end: 20151225
  227. CIPROFLOXACIN [Concomitant]
     Active Substance: CIPROFLOXACIN
     Dosage: 1000 MILLIGRAM, QD (DOSE FORM: 245) CUMULATIVE DOSE: 4000MG (ADDITIONAL DRUG INFO: INTRAVENTRICULAR)
     Route: 048
     Dates: start: 20151218, end: 20151225
  228. AMOXICILLIN\CLAVULANIC ACID [Concomitant]
     Active Substance: AMOXICILLIN\CLAVULANIC ACID
     Indication: Lower respiratory tract infection
     Dosage: 625 MILLIGRAM, QD
     Route: 048
     Dates: start: 20170222, end: 20170228
  229. AMOXICILLIN\CLAVULANIC ACID [Concomitant]
     Active Substance: AMOXICILLIN\CLAVULANIC ACID
     Dosage: 1875 MILLIGRAM, QD
     Route: 048
     Dates: start: 20170222, end: 20170228
  230. AMOXICILLIN\CLAVULANIC ACID [Concomitant]
     Active Substance: AMOXICILLIN\CLAVULANIC ACID
     Dosage: 625 MILLIGRAM, QD
     Route: 048
     Dates: start: 20170222, end: 20170228
  231. AMOXICILLIN\CLAVULANIC ACID [Concomitant]
     Active Substance: AMOXICILLIN\CLAVULANIC ACID
     Dosage: 625 MILLIGRAM, QD
     Route: 048
     Dates: start: 20170222, end: 20170228
  232. FILGRASTIM [Concomitant]
     Active Substance: FILGRASTIM
     Dosage: 300 MICROGRAM, QD (300 MCG,EVERY DAY FOR 3 DAYS STARTING ON DAYS 3 AND 11)
     Route: 058
     Dates: start: 20160421, end: 20160712
  233. FILGRASTIM [Concomitant]
     Active Substance: FILGRASTIM
     Dosage: 300 MICROGRAM, QD
     Route: 058
     Dates: start: 20150725, end: 20150730
  234. FILGRASTIM [Concomitant]
     Active Substance: FILGRASTIM
     Dosage: 300 MICROGRAM, QD (300 MCG,EVERY DAY FOR 3 DAYS STARTING ON DAYS 3 AND 11)
     Route: 058
     Dates: start: 20160421, end: 20160712
  235. FILGRASTIM [Concomitant]
     Active Substance: FILGRASTIM
     Dosage: 300 MICROGRAM, QD
     Route: 058
     Dates: start: 20150725, end: 20150730
  236. FILGRASTIM [Concomitant]
     Active Substance: FILGRASTIM
     Dosage: 300 MICROGRAM, QD (300 MCG,EVERY DAY FOR 3 DAYS STARTING ON DAYS 3 AND 11)
     Route: 058
     Dates: start: 20160421, end: 20160712
  237. FILGRASTIM [Concomitant]
     Active Substance: FILGRASTIM
     Dosage: 300 MICROGRAM, QD (300 MCG,EVERY DAY FOR 3 DAYS STARTING ON DAYS 3 AND 11)
     Route: 058
     Dates: start: 20160421, end: 20160712
  238. FOLIC ACID [Concomitant]
     Active Substance: FOLIC ACID
     Indication: Blood folate decreased
     Dosage: 5 MILLIGRAM, QD
     Route: 048
     Dates: start: 20150828, end: 201708
  239. FOLIC ACID [Concomitant]
     Active Substance: FOLIC ACID
     Indication: Blood folate decreased
     Dosage: 5 MILLIGRAM, QD
     Route: 048
     Dates: start: 20150828, end: 201708
  240. FOLIC ACID [Concomitant]
     Active Substance: FOLIC ACID
     Dosage: 5 MG, QD
     Route: 048
     Dates: start: 20150828, end: 201708
  241. FOLIC ACID [Concomitant]
     Active Substance: FOLIC ACID
     Dosage: 5 MG, QD
     Route: 048
     Dates: start: 20150828, end: 201708
  242. FOLIC ACID [Concomitant]
     Active Substance: FOLIC ACID
     Dosage: 5 MG, QD
     Route: 048
     Dates: start: 20150828
  243. HUMAN RED BLOOD CELL [Concomitant]
     Active Substance: HUMAN RED BLOOD CELL
     Dosage: 2 U, QD
     Route: 042
     Dates: start: 20160702, end: 20160702
  244. HUMAN RED BLOOD CELL [Concomitant]
     Active Substance: HUMAN RED BLOOD CELL
     Dosage: 2 U, QD
     Route: 042
     Dates: start: 20180526, end: 20180526
  245. HUMAN RED BLOOD CELL [Concomitant]
     Active Substance: HUMAN RED BLOOD CELL
     Dosage: 2 U, QD
     Route: 042
     Dates: start: 20160702, end: 20160702
  246. HUMAN RED BLOOD CELL [Concomitant]
     Active Substance: HUMAN RED BLOOD CELL
     Dosage: 2 U, QD
     Route: 042
     Dates: start: 20160702, end: 20160702
  247. HUMAN RED BLOOD CELL [Concomitant]
     Active Substance: HUMAN RED BLOOD CELL
     Dosage: 2 U, QD
     Route: 042
     Dates: start: 20180526, end: 20180526
  248. HUMAN RED BLOOD CELL [Concomitant]
     Active Substance: HUMAN RED BLOOD CELL
     Dosage: 2 U, QD
     Route: 042
     Dates: start: 20180526, end: 20180526
  249. HUMAN RED BLOOD CELL [Concomitant]
     Active Substance: HUMAN RED BLOOD CELL
     Dosage: 2 U, QD
     Route: 042
     Dates: start: 20160702, end: 20160702
  250. GRANULOCYTE COLONY-STIMULATING FACTOR NOS [Concomitant]
     Active Substance: GRANULOCYTE COLONY-STIMULATING FACTOR NOS
     Indication: Product used for unknown indication
     Dosage: 300 MICROGRAM, (QD FOR 3 DAYS STARTING ON DAY 3 AND 11) RECEIVED 300 MCG FROM 25-JUL-2015
     Route: 058
     Dates: start: 20160421, end: 20160721
  251. GRANULOCYTE COLONY-STIMULATING FACTOR NOS [Concomitant]
     Active Substance: GRANULOCYTE COLONY-STIMULATING FACTOR NOS
     Dosage: 300 UG, QD
     Route: 058
     Dates: start: 20150725, end: 20150730
  252. POTASSIUM BICARBONATE\POTASSIUM CHLORIDE [Concomitant]
     Active Substance: POTASSIUM BICARBONATE\POTASSIUM CHLORIDE
     Indication: Nutritional supplementation
     Dosage: 1 DOSAGE FORM, QD (2 TABLETS EVERY DAY)
     Route: 048
     Dates: start: 20150828, end: 20150830
  253. POTASSIUM BICARBONATE\POTASSIUM CHLORIDE [Concomitant]
     Active Substance: POTASSIUM BICARBONATE\POTASSIUM CHLORIDE
     Dosage: 2 DOSAGE FORM, QD,2 TABLETS EVERY DAY
     Route: 048
     Dates: start: 20150828, end: 20150830
  254. POTASSIUM BICARBONATE\POTASSIUM CHLORIDE [Concomitant]
     Active Substance: POTASSIUM BICARBONATE\POTASSIUM CHLORIDE
     Dosage: 2 DOSAGE FORM, QD,2 TABLETS EVERY DAY
     Route: 048
     Dates: start: 20150828, end: 20150830
  255. POTASSIUM BICARBONATE\POTASSIUM CHLORIDE [Concomitant]
     Active Substance: POTASSIUM BICARBONATE\POTASSIUM CHLORIDE
     Dosage: 2 DF, BID
     Route: 048
     Dates: start: 20150828, end: 20150830
  256. POTASSIUM BICARBONATE\POTASSIUM CHLORIDE [Concomitant]
     Active Substance: POTASSIUM BICARBONATE\POTASSIUM CHLORIDE
     Dosage: UNK, BID
     Route: 048
     Dates: start: 20150828, end: 20150830
  257. AMOXICILLIN\CLAVULANATE POTASSIUM [Concomitant]
     Active Substance: AMOXICILLIN\CLAVULANATE POTASSIUM
     Indication: Lower respiratory tract infection
  258. AMOXICILLIN\CLAVULANATE POTASSIUM [Concomitant]
     Active Substance: AMOXICILLIN\CLAVULANATE POTASSIUM
     Dosage: 625 MILLIGRAM, QD
     Route: 048
     Dates: start: 20170222, end: 20170228
  259. AMOXICILLIN\CLAVULANATE POTASSIUM [Concomitant]
     Active Substance: AMOXICILLIN\CLAVULANATE POTASSIUM
     Dosage: 1875 MILLIGRAM, QD
     Route: 048
     Dates: start: 20170222, end: 20170228
  260. AMOXICILLIN\CLAVULANATE POTASSIUM [Concomitant]
     Active Substance: AMOXICILLIN\CLAVULANATE POTASSIUM
     Dosage: 1875 MILLIGRAM, QD
     Route: 048
     Dates: start: 20170222, end: 20170228
  261. AMOXICILLIN\CLAVULANATE POTASSIUM [Concomitant]
     Active Substance: AMOXICILLIN\CLAVULANATE POTASSIUM
     Dosage: 1875 MILLIGRAM, QD
     Route: 048
     Dates: start: 20170222, end: 20170228
  262. AMOXICILLIN\CLAVULANATE POTASSIUM [Concomitant]
     Active Substance: AMOXICILLIN\CLAVULANATE POTASSIUM
     Dosage: 625 MG, QD
     Route: 048
     Dates: start: 20170222, end: 20170228
  263. CLAVULANATE POTASSIUM [Concomitant]
     Active Substance: CLAVULANATE POTASSIUM
     Dosage: 1875 MG, QD
     Route: 048
     Dates: start: 20170222, end: 20170228
  264. CLAVULANATE POTASSIUM [Concomitant]
     Active Substance: CLAVULANATE POTASSIUM
     Dosage: 625 MG, QD
     Route: 048
     Dates: start: 20170222, end: 20170228
  265. HUMAN RED BLOOD CELL [Concomitant]
     Active Substance: HUMAN RED BLOOD CELL
     Dosage: 2 U, QD
     Dates: start: 20160702, end: 20160702
  266. HUMAN RED BLOOD CELL [Concomitant]
     Active Substance: HUMAN RED BLOOD CELL
     Dosage: 2 U, QD
     Dates: start: 20180626, end: 20180626
  267. PIPERACILLIN AND TAZOBACTAM [Concomitant]
     Active Substance: PIPERACILLIN SODIUM\TAZOBACTAM SODIUM
     Indication: Lower respiratory tract infection
     Dosage: UNK
     Route: 042
     Dates: start: 20170213, end: 20170215
  268. VINORELBINE [Concomitant]
     Active Substance: VINORELBINE TARTRATE
     Dosage: 10 MG
  269. AMOXICILLIN [Concomitant]
     Active Substance: AMOXICILLIN
     Indication: Lower respiratory tract infection
     Dosage: 625 MG, QD
     Route: 048
     Dates: start: 20170222, end: 20170228
  270. SANDOL [Concomitant]
     Indication: Nutritional supplementation
     Dosage: 1 DOSAGE FORM, QD (2 TABLETS EVERY DAY
     Route: 048
     Dates: start: 20150828, end: 20150830
  271. SANDOL [Concomitant]
     Dosage: 2 DOSAGE FORM, QD,2 TABLETS EVERY DAY
     Route: 048
     Dates: start: 20150828, end: 20150830

REACTIONS (35)
  - Disease progression [Fatal]
  - Condition aggravated [Fatal]
  - Dysphonia [Fatal]
  - Lethargy [Fatal]
  - Tremor [Fatal]
  - Palpitations [Fatal]
  - Diarrhoea [Fatal]
  - Pyrexia [Fatal]
  - Decreased appetite [Fatal]
  - Neutropenia [Fatal]
  - Fatigue [Fatal]
  - Hyperchlorhydria [Fatal]
  - Throat irritation [Fatal]
  - Decreased appetite [Fatal]
  - Mucosal inflammation [Fatal]
  - Neuropathy peripheral [Fatal]
  - Pyrexia [Fatal]
  - Hypoaesthesia [Fatal]
  - Weight decreased [Fatal]
  - Thrombocytopenia [Fatal]
  - Rash pruritic [Fatal]
  - Dyspepsia [Fatal]
  - Odynophagia [Fatal]
  - Cough [Fatal]
  - Pancytopenia [Fatal]
  - Folate deficiency [Fatal]
  - Colitis [Fatal]
  - Alopecia [Fatal]
  - Nausea [Fatal]
  - Product use issue [Fatal]
  - Intentional product misuse [Fatal]
  - Off label use [Fatal]
  - Fatigue [Unknown]
  - Alopecia [Not Recovered/Not Resolved]
  - Tremor [Unknown]

NARRATIVE: CASE EVENT DATE: 20150601
